FAERS Safety Report 9223382 (Version 3)
Quarter: 2016Q4

REPORT INFORMATION
  Report Type: Report from Study
  Country: NO (occurrence: NO)
  Receive Date: 20130410
  Receipt Date: 20161117
  Transmission Date: 20170207
  Serious: Yes (Hospitalization)
  Sender: FDA-Public Use
  Company Number: NO-009507513-1304NOR002194

PATIENT
  Age: 20 Year
  Sex: Female

DRUGS (1)
  1. INTRON A [Suspect]
     Active Substance: INTERFERON ALFA-2B
     Indication: HEPATITIS
     Dosage: UNK
     Dates: start: 19910605, end: 19910628

REACTIONS (56)
  - Basedow^s disease [Unknown]
  - Hirsutism [Unknown]
  - Enzyme abnormality [Unknown]
  - Abdominal pain [Unknown]
  - Listless [Unknown]
  - Thyroidectomy [Unknown]
  - Back pain [Recovered/Resolved]
  - Pain in extremity [Unknown]
  - Abdominal pain upper [Unknown]
  - Neck pain [Unknown]
  - Pneumonia [Unknown]
  - Osteoarthritis [Unknown]
  - Chronic recurrent multifocal osteomyelitis [Unknown]
  - Pelvic pain [Unknown]
  - Neuritis [Unknown]
  - Hypoaesthesia [Unknown]
  - Chest pain [Unknown]
  - Hyperthyroidism [Unknown]
  - Osteosclerosis [Unknown]
  - Pain [Unknown]
  - Vomiting [Recovered/Resolved]
  - Liver disorder [Recovering/Resolving]
  - Subcutaneous abscess [Unknown]
  - Osteomyelitis chronic [Unknown]
  - Chest pain [Unknown]
  - Diarrhoea [Unknown]
  - Transaminases increased [Unknown]
  - Menstruation irregular [Recovering/Resolving]
  - Urinary incontinence [Unknown]
  - Dyspnoea [Unknown]
  - Muscle spasms [Unknown]
  - Seizure [Unknown]
  - Back pain [Unknown]
  - Pain [Unknown]
  - Facial paresis [Unknown]
  - Haematuria [Unknown]
  - Psoriasis [Recovering/Resolving]
  - Fatigue [Unknown]
  - Monoparesis [Unknown]
  - Chest pain [Unknown]
  - Dizziness [Unknown]
  - Nausea [Unknown]
  - Muscle spasms [Unknown]
  - SAPHO syndrome [Unknown]
  - Partial seizures [Unknown]
  - Brain injury [Unknown]
  - Back pain [Unknown]
  - Headache [Unknown]
  - Chest pain [Unknown]
  - Pain [Unknown]
  - Seizure [Unknown]
  - Listless [Unknown]
  - Nausea [Recovered/Resolved]
  - Vulvovaginal injury [Unknown]
  - Hypercholesterolaemia [Unknown]
  - Musculoskeletal pain [Unknown]

NARRATIVE: CASE EVENT DATE: 1991
